FAERS Safety Report 24897878 (Version 1)
Quarter: 2025Q1

REPORT INFORMATION
  Report Type: Spontaneous
  Country: RS (occurrence: RS)
  Receive Date: 20250129
  Receipt Date: 20250129
  Transmission Date: 20250409
  Serious: Yes (Other)
  Sender: TEVA
  Company Number: RS-TEVA-VS-3289204

PATIENT
  Age: 42 Year
  Sex: Male
  Weight: 107 kg

DRUGS (4)
  1. CIPROFLOXACIN [Suspect]
     Active Substance: CIPROFLOXACIN
     Indication: Urinary tract infection
     Route: 048
     Dates: start: 20250103, end: 20250108
  2. NEBIVOLOL [Concomitant]
     Active Substance: NEBIVOLOL
     Indication: Hypertension
  3. PREXANIL COMBI [Concomitant]
     Indication: Hypertension
  4. PREXANOR [Concomitant]
     Indication: Hypertension

REACTIONS (2)
  - Transaminases increased [Unknown]
  - Musculoskeletal chest pain [Unknown]

NARRATIVE: CASE EVENT DATE: 20250108
